FAERS Safety Report 16828725 (Version 1)
Quarter: 2019Q3

REPORT INFORMATION
  Report Type: Spontaneous
  Country: CN (occurrence: CN)
  Receive Date: 20190919
  Receipt Date: 20190919
  Transmission Date: 20191005
  Serious: Yes (Death)
  Sender: FDA-Public Use
  Company Number: CN-BAXTER-2019BAX018300

PATIENT
  Age: 6 Year
  Sex: Male

DRUGS (1)
  1. METRONIDAZOLE AND SODIUM CHLORIDE INJECTION [Suspect]
     Active Substance: METRONIDAZOLE\SODIUM CHLORIDE
     Indication: REDUCTION OF INCREASED INTRACRANIAL PRESSURE
     Dosage: INFUSED 75ML OF 100 ML METRONIDAZOLE AND SODIUM CHLORIDE INJECTION
     Route: 042
     Dates: start: 20190908, end: 20190908

REACTIONS (3)
  - Wrong product administered [Fatal]
  - Cardio-respiratory arrest [Fatal]
  - Encephalitis [Fatal]

NARRATIVE: CASE EVENT DATE: 20190908
